FAERS Safety Report 21925786 (Version 1)
Quarter: 2023Q1

REPORT INFORMATION
  Report Type: Spontaneous
  Country: DE (occurrence: DE)
  Receive Date: 20230130
  Receipt Date: 20230130
  Transmission Date: 20230417
  Serious: Yes (Other)
  Sender: FDA-Public Use
  Company Number: DE-EMBRYOTOX-202208054

PATIENT
  Sex: Female
  Weight: 2.98 kg

DRUGS (2)
  1. LAMOTRIGINE [Suspect]
     Active Substance: LAMOTRIGINE
     Indication: Foetal exposure during pregnancy
     Dosage: MATERNAL DOSE: 200 MG, QD
     Route: 064
  2. ESCITALOPRAM [Concomitant]
     Active Substance: ESCITALOPRAM OXALATE
     Indication: Foetal exposure during pregnancy
     Dosage: MATERNAL DOSE: 20 MG, QD
     Route: 064

REACTIONS (2)
  - Agitation neonatal [Recovered/Resolved]
  - Selective eating disorder [Recovered/Resolved]
